FAERS Safety Report 5116806-X (Version None)
Quarter: 2006Q3

REPORT INFORMATION
  Report Type: 
  Country: None (occurrence: None)
  Receive Date: 20060925
  Receipt Date: 20060915
  Transmission Date: 20061208
  Serious: Yes (Other)
  Sender: FDA-Public Use
  Company Number: 2006111651

PATIENT
  Age: 80 Year
  Sex: Female

DRUGS (5)
  1. LIPITOR [Suspect]
     Dosage: 20 MG (20 MG, 1 IN 1 D);
     Dates: start: 20060731
  2. LISINOPRIL [Concomitant]
  3. ALL OTHER THERAPEUTIC PRODUCTS [Concomitant]
  4. ASCORBIC ACID [Concomitant]
  5. VITAMIN E [Concomitant]

REACTIONS (3)
  - HYPOAESTHESIA [None]
  - MALAISE [None]
  - MOVEMENT DISORDER [None]
